FAERS Safety Report 7568278-3 (Version None)
Quarter: 2011Q2

REPORT INFORMATION
  Report Type: 
  Country: None (occurrence: None)
  Receive Date: 20110623
  Receipt Date: 20110609
  Transmission Date: 20111010
  Serious: Yes (Hospitalization)
  Sender: FDA-Public Use
  Company Number: CA-JNJFOC-20110600664

PATIENT
  Sex: Male
  Weight: 66 kg

DRUGS (3)
  1. HYDROCORTISONE [Concomitant]
     Indication: PREMEDICATION
     Route: 065
  2. REMICADE [Suspect]
     Route: 042
     Dates: start: 20080801
  3. REMICADE [Suspect]
     Indication: COLITIS ULCERATIVE
     Route: 042
     Dates: start: 20071213

REACTIONS (1)
  - APPENDICITIS [None]
